FAERS Safety Report 17820819 (Version 2)
Quarter: 2020Q4

REPORT INFORMATION
  Report Type: Report from Study
  Country: CN (occurrence: CN)
  Receive Date: 20200525
  Receipt Date: 20201218
  Transmission Date: 20210113
  Serious: Yes (Death)
  Sender: FDA-Public Use
  Company Number: CN-PFIZER INC-2020201836

PATIENT

DRUGS (5)
  1. METHOTREXATE. [Suspect]
     Active Substance: METHOTREXATE
     Indication: T-CELL LYMPHOMA
     Dosage: 1000 MG/M2, CYCLIC (FOR 4 H ON DAY 2) (REPEATED EVERY 4 WEEKS)
     Route: 042
  2. GEMCITABINE. [Suspect]
     Active Substance: GEMCITABINE
     Indication: T-CELL LYMPHOMA
     Dosage: 1000 MG/M2, CYCLIC (ON DAY 1), (REPEATED EVERY 4 WEEKS)
     Route: 042
  3. PEGASPARGASE [Suspect]
     Active Substance: PEGASPARGASE
     Indication: T-CELL LYMPHOMA
     Dosage: 3750 IU, CYCLIC (ON DAY 5), (REPEATED EVERY 4 WEEKS)
     Route: 058
  4. DEXAMETHASONE. [Suspect]
     Active Substance: DEXAMETHASONE
     Indication: T-CELL LYMPHOMA
     Dosage: 40 MG, DAILY, CYCLIC (ON DAY 1-4), (REPEATED EVERY 4 WEEKS)
     Route: 042
  5. CISPLATIN. [Suspect]
     Active Substance: CISPLATIN
     Indication: T-CELL LYMPHOMA
     Dosage: 75 MG/M2, CYCLIC (ON DAY 1), (REPEATED EVERY 4 WEEKS)
     Route: 042

REACTIONS (1)
  - Febrile neutropenia [Fatal]
